FAERS Safety Report 13316074 (Version 3)
Quarter: 2017Q1

REPORT INFORMATION
  Report Type: Spontaneous
  Country: US (occurrence: US)
  Receive Date: 20170310
  Receipt Date: 20170324
  Transmission Date: 20170428
  Serious: No
  Sender: FDA-Public Use
  Company Number: US-BIOGEN-2017BI00367364

PATIENT
  Sex: Female

DRUGS (2)
  1. TYSABRI [Suspect]
     Active Substance: NATALIZUMAB
     Indication: MULTIPLE SCLEROSIS
     Route: 065
     Dates: start: 20160201, end: 20160201
  2. TYSABRI [Suspect]
     Active Substance: NATALIZUMAB
     Route: 042
     Dates: start: 20160201, end: 20160201

REACTIONS (7)
  - Bone pain [Unknown]
  - Asthenia [Unknown]
  - Muscular weakness [Unknown]
  - Multiple sclerosis [Unknown]
  - Visual impairment [Unknown]
  - Myalgia [Unknown]
  - General physical health deterioration [Not Recovered/Not Resolved]
